FAERS Safety Report 5407846-1 (Version None)
Quarter: 2007Q3

REPORT INFORMATION
  Report Type: 
  Country: None (occurrence: None)
  Receive Date: 20070803
  Receipt Date: 20070724
  Transmission Date: 20080115
  Serious: Yes (Life-Threatening, Hospitalization)
  Sender: FDA-Public Use
  Company Number: MEDI-0005862

PATIENT
  Sex: Female

DRUGS (2)
  1. ETHYOL [Suspect]
     Indication: NEOPLASM MALIGNANT
     Dosage: 500 MG, 1 IN 1 D, SUBCUTANEOUS
     Route: 058
  2. RADIATION THERAPY [Concomitant]

REACTIONS (4)
  - ANAPHYLACTOID REACTION [None]
  - DIARRHOEA [None]
  - NAUSEA [None]
  - VOMITING [None]
